FAERS Safety Report 8809662 (Version 2)
Quarter: 2014Q3

REPORT INFORMATION
  Report Type: Report from Study
  Country: US (occurrence: US)
  Receive Date: 20120926
  Receipt Date: 20140903
  Transmission Date: 20150326
  Serious: Yes (Death, Hospitalization, Other)
  Sender: FDA-Public Use
  Company Number: US-ROCHE-1122892

PATIENT
  Sex: Female
  Weight: 78.29 kg

DRUGS (6)
  1. TORISEL [Concomitant]
     Active Substance: TEMSIROLIMUS
     Dosage: DOSAGE 790
     Route: 065
  2. AVASTIN [Suspect]
     Active Substance: BEVACIZUMAB
     Indication: RENAL CANCER
     Dosage: DOSAGE 860
     Route: 065
  3. SUTENT [Concomitant]
     Active Substance: SUNITINIB MALATE
  4. AVASTIN [Suspect]
     Active Substance: BEVACIZUMAB
     Indication: LUNG NEOPLASM MALIGNANT
     Route: 065
     Dates: start: 20081028
  5. OXYCODONE [Concomitant]
     Active Substance: OXYCODONE
  6. AVASTIN [Suspect]
     Active Substance: BEVACIZUMAB
     Route: 065
     Dates: start: 20081125

REACTIONS (4)
  - Pancytopenia [Unknown]
  - Disease progression [Unknown]
  - Death [Fatal]
  - Pain [Recovering/Resolving]
